FAERS Safety Report 9988146 (Version 2)
Quarter: 2014Q2

REPORT INFORMATION
  Report Type: Spontaneous
  Country: FR (occurrence: FR)
  Receive Date: 20140308
  Receipt Date: 20140408
  Transmission Date: 20141212
  Serious: Yes (Hospitalization)
  Sender: FDA-Public Use
  Company Number: FR-US-EMD SERONO, INC.-7273077

PATIENT
  Age: 32 Year
  Sex: Female

DRUGS (2)
  1. GONAL-F [Suspect]
     Indication: IN VITRO FERTILISATION
     Dosage: 900 IU/1.5 ML (66 MICROGRAMS/1.5 ML)
     Route: 058
     Dates: start: 20120616, end: 20120628
  2. OVITRELLE [Suspect]
     Indication: IN VITRO FERTILISATION
     Dosage: 1 AMPOULE (1 DOSAGE FORM)
     Dates: start: 20120629, end: 20120629

REACTIONS (3)
  - Peritoneal haemorrhage [Recovered/Resolved]
  - Pyrexia [Recovered/Resolved]
  - Anaemia [Recovered/Resolved]
